FAERS Safety Report 10006042 (Version 1)
Quarter: 2014Q1

REPORT INFORMATION
  Report Type: Spontaneous
  Country: US (occurrence: US)
  Receive Date: 20140313
  Receipt Date: 20140313
  Transmission Date: 20141002
  Serious: No
  Sender: FDA-Public Use
  Company Number: US-MYLANLABS-2014S1002275

PATIENT
  Sex: Male

DRUGS (5)
  1. ZOLPIDEM TARTRATE TABLETS [Suspect]
     Route: 048
  2. AMLODIPINE BESYLATE TABLETS [Suspect]
     Route: 048
  3. LISINOPRIL TABLETS, USP [Suspect]
     Route: 048
  4. CARVEDILOL TABLETS [Suspect]
     Route: 048
  5. CLOPIDOGREL TABLETS USP [Suspect]
     Route: 048

REACTIONS (2)
  - Hypersensitivity [Recovered/Resolved]
  - Reaction to drug excipients [Recovered/Resolved]
